FAERS Safety Report 7939647-4 (Version None)
Quarter: 2011Q4

REPORT INFORMATION
  Report Type: 
  Country: None (occurrence: None)
  Receive Date: 20111125
  Receipt Date: 20111110
  Transmission Date: 20120403
  Serious: Yes (Hospitalization)
  Sender: FDA-Public Use
  Company Number: PHHO2011IT019118

PATIENT
  Sex: Male
  Weight: 60 kg

DRUGS (6)
  1. DESFERAL [Suspect]
     Dosage: UNK MG, UNK
     Dates: start: 20111110
  2. CARVEDILOL [Concomitant]
     Indication: CARDIOMYOPATHY
     Dosage: UNK
     Dates: start: 20050316
  3. CALCITRIOL [Concomitant]
     Indication: OSTEOPOROSIS
     Dosage: UNK
     Dates: start: 19951011
  4. INSULIN [Concomitant]
     Indication: DIABETES MELLITUS
     Dosage: UNK
     Dates: start: 20041201
  5. DESFERAL [Suspect]
     Indication: IRON OVERLOAD
     Dosage: 20 MG/KG, UNK
     Dates: start: 20110309, end: 20111016
  6. EXJADE [Suspect]
     Dosage: UNK
     Dates: start: 20110309

REACTIONS (1)
  - INFECTED DERMAL CYST [None]
